FAERS Safety Report 20657703 (Version 1)
Quarter: 2022Q1

REPORT INFORMATION
  Report Type: Spontaneous
  Country: CN (occurrence: CN)
  Receive Date: 20220331
  Receipt Date: 20220331
  Transmission Date: 20220424
  Serious: Yes (Other)
  Sender: FDA-Public Use
  Company Number: CN-SA-SAC20220325000995

PATIENT
  Age: 88 Year
  Sex: Female
  Weight: 45 kg

DRUGS (3)
  1. ZOLPIDEM TARTRATE [Suspect]
     Active Substance: ZOLPIDEM TARTRATE
     Indication: Insomnia
     Dosage: 10 MG, QD
     Route: 048
     Dates: start: 20220119, end: 20220307
  2. GINKGOLIDE A;GINKGOLIDE B;GINKGOLIDE K [Concomitant]
     Dosage: UNK
     Route: 065
  3. OLANZAPINE [Concomitant]
     Active Substance: OLANZAPINE
     Indication: Insomnia
     Dosage: 5 MG, QD
     Route: 048
     Dates: start: 20220119, end: 20220311

REACTIONS (7)
  - Cerebral arteriosclerosis [Recovering/Resolving]
  - Cerebral infarction [Recovering/Resolving]
  - Senile dementia [Recovering/Resolving]
  - Demyelination [Recovering/Resolving]
  - Drooling [Recovering/Resolving]
  - Tremor [Recovering/Resolving]
  - Product use issue [Unknown]

NARRATIVE: CASE EVENT DATE: 20220227
